FAERS Safety Report 18458678 (Version 1)
Quarter: 2020Q4

REPORT INFORMATION
  Report Type: Spontaneous
  Country: US (occurrence: US)
  Receive Date: 20201103
  Receipt Date: 20201103
  Transmission Date: 20210114
  Serious: No
  Sender: FDA-Public Use
  Company Number: US-IPSEN BIOPHARMACEUTICALS, INC.-2020-20986

PATIENT
  Age: 45 Year
  Sex: Female

DRUGS (4)
  1. DYSPORT [Suspect]
     Active Substance: ABOBOTULINUMTOXINA
     Indication: OFF LABEL USE
  2. DYSPORT [Suspect]
     Active Substance: ABOBOTULINUMTOXINA
     Indication: SKIN WRINKLING
     Dosage: DOSE NOT REPORTED
     Route: 065
     Dates: start: 20200806, end: 20200806
  3. VITAMIN B12 [Concomitant]
     Active Substance: CYANOCOBALAMIN
  4. IRON [Concomitant]
     Active Substance: IRON

REACTIONS (6)
  - Tinnitus [Not Recovered/Not Resolved]
  - Off label use [Unknown]
  - Swelling face [Not Recovered/Not Resolved]
  - Ear discomfort [Not Recovered/Not Resolved]
  - Paraesthesia [Not Recovered/Not Resolved]
  - Eye paraesthesia [Not Recovered/Not Resolved]

NARRATIVE: CASE EVENT DATE: 202008
